FAERS Safety Report 4974382-6 (Version None)
Quarter: 2006Q2

REPORT INFORMATION
  Report Type: 
  Country: None (occurrence: None)
  Receive Date: 20060410
  Receipt Date: 20060327
  Transmission Date: 20061013
  Serious: Yes (Hospitalization, Other)
  Sender: FDA-Public Use
  Company Number: 2005159193

PATIENT
  Age: 67 Year
  Sex: Female
  Weight: 70.3075 kg

DRUGS (2)
  1. DETROL [Suspect]
     Indication: URGE INCONTINENCE
     Dosage: 2 MG (2 MG, 1 IN 1 D), ORAL
     Dates: start: 20030101, end: 20040101
  2. DETROL LA [Suspect]
     Indication: URGE INCONTINENCE
     Dosage: 4 MG (4 MG, 1 IN 1 D), ORAL
     Route: 048
     Dates: start: 20060313, end: 20060320

REACTIONS (3)
  - CHOLELITHIASIS [None]
  - DRY MOUTH [None]
  - PHARYNGOLARYNGEAL PAIN [None]
